FAERS Safety Report 9812357 (Version 1)
Quarter: 2014Q1

REPORT INFORMATION
  Report Type: Spontaneous
  Country: US (occurrence: US)
  Receive Date: 20140113
  Receipt Date: 20140113
  Transmission Date: 20141002
  Serious: No
  Sender: FDA-Public Use
  Company Number: US-US-EMD SERONO, INC.-7261982

PATIENT
  Sex: Female

DRUGS (1)
  1. GONAL-F RFF PEN [Suspect]
     Indication: PRODUCT USED FOR UNKNOWN INDICATION

REACTIONS (3)
  - Oestradiol decreased [Unknown]
  - Injection site extravasation [Unknown]
  - Drug dose omission [Unknown]
